FAERS Safety Report 18849147 (Version 1)
Quarter: 2021Q1

REPORT INFORMATION
  Report Type: Spontaneous
  Country: US (occurrence: US)
  Receive Date: 20210204
  Receipt Date: 20210204
  Transmission Date: 20210419
  Serious: No
  Sender: FDA-Public Use
  Company Number: US-JNJFOC-20210142859

PATIENT

DRUGS (1)
  1. VELETRI [Suspect]
     Active Substance: EPOPROSTENOL
     Indication: PRODUCT USED FOR UNKNOWN INDICATION
     Dosage: VELETRI OFF LABEL VIA AEROSOLIZED INHALER

REACTIONS (3)
  - Off label use [Unknown]
  - COVID-19 [Not Recovered/Not Resolved]
  - Product use issue [Unknown]
